FAERS Safety Report 9806819 (Version 1)
Quarter: 2014Q1

REPORT INFORMATION
  Report Type: Spontaneous
  Country: US (occurrence: US)
  Receive Date: 20140109
  Receipt Date: 20140109
  Transmission Date: 20141002
  Serious: No
  Sender: FDA-Public Use
  Company Number: US-ABBVIE-13P-163-1128818-00

PATIENT
  Age: 62 Year
  Sex: Female

DRUGS (8)
  1. VICODIN [Suspect]
     Indication: PAIN
     Dates: start: 20130515, end: 20130515
  2. SUTENT [Suspect]
     Indication: PRODUCT USED FOR UNKNOWN INDICATION
     Dates: start: 201306
  3. NYSTATIN [Concomitant]
     Indication: PRODUCT USED FOR UNKNOWN INDICATION
     Dosage: SWISH AND SWALLOW
  4. LIDOCAINE BASED MOUTHWASH [Concomitant]
     Indication: PRODUCT USED FOR UNKNOWN INDICATION
  5. ZOMETA [Concomitant]
     Indication: PRODUCT USED FOR UNKNOWN INDICATION
  6. BIOTENE [Concomitant]
     Indication: PRODUCT USED FOR UNKNOWN INDICATION
     Dosage: MOUTHWASH AND TOOTHPASTE
  7. TYLENOL [Concomitant]
     Indication: PRODUCT USED FOR UNKNOWN INDICATION
  8. TRAMADOL [Concomitant]
     Indication: PRODUCT USED FOR UNKNOWN INDICATION

REACTIONS (20)
  - Hypersensitivity [Recovered/Resolved]
  - Somnolence [Recovered/Resolved]
  - Chills [Recovered/Resolved]
  - Nausea [Recovered/Resolved]
  - Mood altered [Recovered/Resolved]
  - Feeling abnormal [Recovered/Resolved]
  - Depression [Recovered/Resolved]
  - Anxiety [Recovered/Resolved]
  - Drug ineffective [Recovered/Resolved]
  - Back pain [Unknown]
  - Dysgeusia [Unknown]
  - Decreased appetite [Unknown]
  - Hypophagia [Unknown]
  - Oral pain [Unknown]
  - Candida infection [Unknown]
  - Oral pain [Unknown]
  - Glossodynia [Unknown]
  - Fatigue [Unknown]
  - Pruritus [Unknown]
  - Dry skin [Unknown]
